FAERS Safety Report 15740258 (Version 2)
Quarter: 2019Q1

REPORT INFORMATION
  Report Type: Report from Study
  Country: None (occurrence: NO)
  Receive Date: 20181219
  Receipt Date: 20190108
  Transmission Date: 20190417
  Serious: Yes (Hospitalization)
  Sender: FDA-Public Use
  Company Number: NO-ABBVIE-18S-122-2578279-00

PATIENT
  Age: 71 Year
  Sex: Male

DRUGS (5)
  1. DUODOPA [Suspect]
     Active Substance: CARBIDOPA\LEVODOPA
     Indication: PRODUCT USED FOR UNKNOWN INDICATION
     Route: 050
     Dates: start: 20181003, end: 20181108
  2. STALEVO [Concomitant]
     Active Substance: CARBIDOPA\ENTACAPONE\LEVODOPA
     Indication: PRODUCT USED FOR UNKNOWN INDICATION
  3. SINMET DEPOT MITE [Concomitant]
     Indication: PRODUCT USED FOR UNKNOWN INDICATION
  4. MADOPAR SOLUBLE [Concomitant]
     Indication: PRODUCT USED FOR UNKNOWN INDICATION
  5. SIFROL DEPOT [Concomitant]
     Indication: PRODUCT USED FOR UNKNOWN INDICATION

REACTIONS (9)
  - Stoma site infection [Recovering/Resolving]
  - On and off phenomenon [Unknown]
  - Feeling abnormal [Unknown]
  - Underdose [Unknown]
  - Abscess [Recovering/Resolving]
  - Parkinson^s disease [Unknown]
  - Infection susceptibility increased [Recovering/Resolving]
  - Drug ineffective [Unknown]
  - Freezing phenomenon [Unknown]

NARRATIVE: CASE EVENT DATE: 201810
